FAERS Safety Report 4751008-8 (Version None)
Quarter: 2005Q3

REPORT INFORMATION
  Report Type: 
  Country: None (occurrence: None)
  Receive Date: 20050824
  Receipt Date: 20050803
  Transmission Date: 20060218
  Serious: Yes (Hospitalization)
  Sender: FDA-Public Use
  Company Number: US-BOEHRINGER INGELHEIM PHARMACEUTICALS, INC.-2005-BP-13255BP

PATIENT
  Sex: Female

DRUGS (9)
  1. MOBIC [Suspect]
     Indication: OSTEOARTHRITIS
     Route: 048
     Dates: start: 20041001, end: 20050802
  2. TOPAMAX [Concomitant]
     Indication: MIGRAINE
     Dates: start: 20050612
  3. ESTRACE [Concomitant]
     Indication: MENOPAUSAL SYMPTOMS
  4. FOSAMAX [Concomitant]
     Indication: OSTEOPOROSIS
  5. ZETIA [Concomitant]
     Indication: BLOOD CHOLESTEROL INCREASED
  6. MULTIVITAMIN [Concomitant]
  7. CALCIUM PLUS D [Concomitant]
  8. OSTEOBIFLEX [Concomitant]
  9. GLUCOSAMINE /CHONDROITIN [Concomitant]

REACTIONS (4)
  - INFLUENZA LIKE ILLNESS [None]
  - MUSCULOSKELETAL STIFFNESS [None]
  - PHARYNGOLARYNGEAL PAIN [None]
  - RHINORRHOEA [None]
